FAERS Safety Report 5010546-3 (Version None)
Quarter: 2006Q2

REPORT INFORMATION
  Report Type: 
  Country: None (occurrence: None)
  Receive Date: 20060525
  Receipt Date: 20060518
  Transmission Date: 20061013
  Serious: Yes (Hospitalization)
  Sender: FDA-Public Use
  Company Number: US-JNJFOC-20060504209

PATIENT
  Sex: Female

DRUGS (17)
  1. REMICADE [Suspect]
     Indication: RHEUMATOID ARTHRITIS
     Route: 042
  2. ASPIRIN [Concomitant]
  3. DILTIAZEM [Concomitant]
  4. DARVOCET-N 100 [Concomitant]
  5. DARVOCET-N 100 [Concomitant]
  6. FOLIC ACID [Concomitant]
  7. METHOTREXATE [Concomitant]
  8. NORTRIPTYLINE HCL [Concomitant]
  9. POTASSIUM [Concomitant]
  10. PREDNISONE TAB [Concomitant]
  11. PREMARIN [Concomitant]
  12. PRILOSEC [Concomitant]
  13. TRIAMTERENE [Concomitant]
  14. CELEBREX [Concomitant]
  15. VICODIN [Concomitant]
  16. VICODIN [Concomitant]
  17. CARTIA XT [Concomitant]

REACTIONS (1)
  - COLITIS [None]
